FAERS Safety Report 4930493-2 (Version None)
Quarter: 2006Q1

REPORT INFORMATION
  Report Type: 
  Country: None (occurrence: None)
  Receive Date: 20060302
  Receipt Date: 20050113
  Transmission Date: 20060701
  Serious: Yes (Death, Hospitalization)
  Sender: FDA-Public Use
  Company Number: US-MERCK-0501USA01757

PATIENT
  Age: 81 Year
  Sex: Female

DRUGS (1)
  1. VIOXX [Suspect]
     Route: 048
     Dates: start: 20000101, end: 20030516

REACTIONS (8)
  - ANAEMIA [None]
  - ANOXIC ENCEPHALOPATHY [None]
  - CEREBRAL HAEMORRHAGE [None]
  - CONTUSION [None]
  - DIABETES MELLITUS [None]
  - FALL [None]
  - MALIGNANT HYPERTENSION [None]
  - RESPIRATORY FAILURE [None]
